FAERS Safety Report 17229537 (Version 2)
Quarter: 2020Q1

REPORT INFORMATION
  Report Type: Report from Study
  Country: BR (occurrence: BR)
  Receive Date: 20200103
  Receipt Date: 20200114
  Transmission Date: 20200409
  Serious: Yes (Other)
  Sender: FDA-Public Use
  Company Number: PHHY2019BR224742

PATIENT
  Age: 68 Year
  Sex: Female

DRUGS (3)
  1. AMITRIPTYLINE [Concomitant]
     Active Substance: AMITRIPTYLINE
     Indication: SLEEP DISORDER
     Dosage: 25 MG
     Route: 048
  2. COSENTYX [Suspect]
     Active Substance: SECUKINUMAB
     Indication: PSORIATIC ARTHROPATHY
     Dosage: UNK
     Route: 065
     Dates: start: 20190820
  3. CALCIUM CARBONATE. [Concomitant]
     Active Substance: CALCIUM CARBONATE
     Indication: SLEEP DISORDER
     Dosage: UNK
     Route: 048

REACTIONS (4)
  - Eye irritation [Recovering/Resolving]
  - Lip dry [Recovering/Resolving]
  - Depressed mood [Not Recovered/Not Resolved]
  - Injection site discolouration [Unknown]

NARRATIVE: CASE EVENT DATE: 2019
